FAERS Safety Report 6772312-8 (Version None)
Quarter: 2010Q2

REPORT INFORMATION
  Report Type: 
  Country: None (occurrence: None)
  Receive Date: 20100616
  Receipt Date: 20100401
  Transmission Date: 20101027
  Serious: No
  Sender: FDA-Public Use
  Company Number: US-ASTRAZENECA-2010SE14563

PATIENT
  Sex: Female

DRUGS (2)
  1. PULMICORT RESPULES [Suspect]
     Indication: WHEEZING
     Dosage: 1.0 BID
     Route: 055
     Dates: start: 20100326, end: 20100329
  2. ALBUTEROL [Concomitant]

REACTIONS (9)
  - APHONIA [None]
  - DISORIENTATION [None]
  - DYSPNOEA [None]
  - EYE DISORDER [None]
  - HEADACHE [None]
  - HYPERTENSION [None]
  - MALAISE [None]
  - NASAL CONGESTION [None]
  - NERVOUSNESS [None]
